FAERS Safety Report 5028138-9 (Version None)
Quarter: 2006Q2

REPORT INFORMATION
  Report Type: 
  Country: None (occurrence: None)
  Receive Date: 20060613
  Receipt Date: 20060522
  Transmission Date: 20061013
  Serious: Yes (Death, Other)
  Sender: FDA-Public Use
  Company Number: 2006071020

PATIENT
  Age: 63 Year
  Sex: Male
  Weight: 83.9154 kg

DRUGS (3)
  1. BEXTRA [Suspect]
     Indication: ILL-DEFINED DISORDER
     Dosage: 10  MG (10 MG, 1 IN 1 D), ORAL
     Route: 048
     Dates: start: 20050101, end: 20050215
  2. ASPIRIN [Concomitant]
  3. ACETAMINOPHEN [Concomitant]

REACTIONS (7)
  - ARRHYTHMIA [None]
  - CARDIAC ARREST [None]
  - HYPOKALAEMIA [None]
  - RENAL FAILURE ACUTE [None]
  - SEPSIS [None]
  - STEVENS-JOHNSON SYNDROME [None]
  - SYSTEMIC INFLAMMATORY RESPONSE SYNDROME [None]
